FAERS Safety Report 5492195-6 (Version None)
Quarter: 2007Q4

REPORT INFORMATION
  Report Type: 
  Country: None (occurrence: None)
  Receive Date: 20071022
  Receipt Date: 20071010
  Transmission Date: 20080405
  Serious: Yes (Death, Life-Threatening)
  Sender: FDA-Public Use
  Company Number: DE-ROCHE-440831

PATIENT
  Age: 59 Year
  Sex: Female

DRUGS (6)
  1. DACLIZUMAB [Suspect]
     Dosage: FORM: IV NOS.
     Route: 042
     Dates: start: 20051001
  2. DACLIZUMAB [Suspect]
     Route: 042
  3. TACROLIMUS [Suspect]
     Route: 048
     Dates: start: 20051001, end: 20051125
  4. TACROLIMUS [Suspect]
     Route: 048
     Dates: start: 20051128, end: 20060217
  5. HYDROCORTISON [Concomitant]
  6. ERYTHROMYCIN [Concomitant]

REACTIONS (4)
  - CYTOMEGALOVIRUS INFECTION [None]
  - PNEUMONIA [None]
  - SEPSIS [None]
  - SEPTIC SHOCK [None]
